FAERS Safety Report 5722488-6 (Version None)
Quarter: 2008Q2

REPORT INFORMATION
  Report Type: 
  Country: None (occurrence: None)
  Receive Date: 20080429
  Receipt Date: 20070628
  Transmission Date: 20081010
  Serious: No
  Sender: FDA-Public Use
  Company Number: US-ASTRAZENECA-2007UW15401

PATIENT
  Age: 73 Year
  Sex: Male
  Weight: 63 kg

DRUGS (9)
  1. NEXIUM [Suspect]
     Indication: GASTROOESOPHAGEAL REFLUX DISEASE
     Route: 048
  2. NEXIUM [Interacting]
     Indication: BARRETT'S OESOPHAGUS
     Route: 048
  3. SINGULAIR [Interacting]
  4. ADVAIR HFA [Interacting]
  5. ZOCOR [Concomitant]
  6. ALTACE [Concomitant]
  7. ZETIA [Concomitant]
  8. VITAMIN CAP [Concomitant]
  9. PLAVIX [Concomitant]

REACTIONS (3)
  - DRUG INTERACTION [None]
  - GASTROOESOPHAGEAL REFLUX DISEASE [None]
  - NAUSEA [None]
